FAERS Safety Report 18919228 (Version 2)
Quarter: 2021Q3

REPORT INFORMATION
  Report Type: Spontaneous
  Country: US (occurrence: US)
  Receive Date: 20210219
  Receipt Date: 20210722
  Transmission Date: 20211014
  Serious: Yes (Hospitalization)
  Sender: FDA-Public Use
  Company Number: US-SEATTLE GENETICS-2021SGN00893

PATIENT
  Sex: Female

DRUGS (1)
  1. TUKYSA [Suspect]
     Active Substance: TUCATINIB
     Indication: BREAST CANCER METASTATIC
     Dosage: 150 MG, BID
     Route: 048

REACTIONS (6)
  - Providencia infection [Unknown]
  - Haematuria [Unknown]
  - Catheter removal [Unknown]
  - Stent placement [Unknown]
  - Dysphagia [Unknown]
  - Hypotension [Unknown]
